FAERS Safety Report 25585267 (Version 1)
Quarter: 2025Q3

REPORT INFORMATION
  Report Type: Spontaneous
  Country: EU (occurrence: EU)
  Receive Date: 20250721
  Receipt Date: 20250721
  Transmission Date: 20251020
  Serious: Yes (Congenital Anomaly, Other)
  Sender: Unknown Manufacturer
  Company Number: EU-STRIDES ARCOLAB LIMITED-2025OS000179

PATIENT

DRUGS (1)
  1. IBUPROFEN [Suspect]
     Active Substance: IBUPROFEN
     Indication: Product used for unknown indication
     Route: 064

REACTIONS (6)
  - Neonatal cardiac failure [None]
  - Ductus arteriosus stenosis foetal [None]
  - Ductus arteriosus premature closure [None]
  - Foetal cardiac disorder [None]
  - Premature baby [Unknown]
  - Foetal exposure during pregnancy [Unknown]
